FAERS Safety Report 7919487-2 (Version None)
Quarter: 2011Q4

REPORT INFORMATION
  Report Type: 
  Country: None (occurrence: None)
  Receive Date: 20111115
  Receipt Date: 20111101
  Transmission Date: 20120403
  Serious: Yes (Other)
  Sender: FDA-Public Use
  Company Number: 20110676

PATIENT
  Age: 63 Year
  Sex: Male
  Weight: 165 kg

DRUGS (2)
  1. SPRIX [Suspect]
     Indication: RENAL COLIC
     Dosage: EACH NOSTRIL NASAL
     Route: 045
  2. KETOROLAC TROMETHAMINE [Suspect]
     Indication: RENAL COLIC
     Dosage: 15 CC PER PATIENT

REACTIONS (11)
  - LACRIMATION INCREASED [None]
  - RENAL PAIN [None]
  - OBSTRUCTION [None]
  - NASAL DISCOMFORT [None]
  - FEAR [None]
  - HYPERHIDROSIS [None]
  - EAR DISORDER [None]
  - CHEST DISCOMFORT [None]
  - THROAT TIGHTNESS [None]
  - DYSPNOEA [None]
  - ANAPHYLACTOID REACTION [None]
